FAERS Safety Report 5302500-9 (Version None)
Quarter: 2007Q2

REPORT INFORMATION
  Report Type: 
  Country: None (occurrence: None)
  Receive Date: 20070419
  Receipt Date: 20070410
  Transmission Date: 20071010
  Serious: Yes (Hospitalization)
  Sender: FDA-Public Use
  Company Number: JP-ELI_LILLY_AND_COMPANY-JP200704003176

PATIENT
  Age: 60 Year
  Sex: Female

DRUGS (3)
  1. HUMALOG MIX 50/50 [Suspect]
     Dosage: 52 IU, UNK
     Dates: end: 20061101
  2. HUMALOG MIX 50/50 [Suspect]
     Dosage: 108 IU, DAILY (1/D)
     Dates: start: 20061101, end: 20061101
  3. HUMALOG MIX 50/50 [Suspect]
     Dosage: 52 IU, UNK
     Dates: start: 20061101

REACTIONS (1)
  - INCORRECT DOSE ADMINISTERED [None]
